FAERS Safety Report 9550542 (Version 1)
Quarter: 2013Q3

REPORT INFORMATION
  Report Type: Spontaneous
  Country: US (occurrence: US)
  Receive Date: 20130924
  Receipt Date: 20130924
  Transmission Date: 20140515
  Serious: No
  Sender: FDA-Public Use
  Company Number: US-SANOFI-AVENTIS-2013SA030646

PATIENT
  Age: 59 Year
  Sex: Female
  Weight: 90.71 kg

DRUGS (7)
  1. AUBAGIO [Suspect]
     Indication: MULTIPLE SCLEROSIS
     Route: 065
     Dates: start: 20130305, end: 20130331
  2. AUBAGIO [Suspect]
     Indication: MULTIPLE SCLEROSIS
     Route: 065
  3. BACLOFEN [Concomitant]
     Indication: MUSCLE SPASMS
     Dates: start: 1985
  4. PROZAC [Concomitant]
     Indication: DEPRESSION
     Dates: start: 1985
  5. LOSARTAN [Concomitant]
     Indication: HYPERTENSION
     Dates: start: 2012
  6. TRAZODONE [Concomitant]
     Indication: SLEEP DISORDER
     Dates: start: 1990
  7. GABAPENTIN [Concomitant]
     Indication: NEURALGIA
     Dates: start: 2012

REACTIONS (3)
  - Tooth discolouration [Recovered/Resolved]
  - Limb discomfort [Recovered/Resolved]
  - Pain in extremity [Recovered/Resolved]
